FAERS Safety Report 13142281 (Version 1)
Quarter: 2017Q1

REPORT INFORMATION
  Report Type: Spontaneous
  Country: US (occurrence: US)
  Receive Date: 20170124
  Receipt Date: 20170124
  Transmission Date: 20170428
  Serious: No
  Sender: FDA-Public Use
  Company Number: US-009507513-1701USA005300

PATIENT

DRUGS (2)
  1. TICE BCG [Suspect]
     Active Substance: BACILLUS CALMETTE-GUERIN SUBSTRAIN TICE LIVE ANTIGEN
     Indication: BLADDER CANCER
     Dosage: UNK
  2. BCG VACCINE USP [Suspect]
     Active Substance: BCG VACCINE
     Indication: PROPHYLAXIS
     Route: 043

REACTIONS (4)
  - Incorrect route of drug administration [Unknown]
  - No adverse event [Unknown]
  - Wrong drug administered [Unknown]
  - Product name confusion [Unknown]
